FAERS Safety Report 13065008 (Version 1)
Quarter: 2016Q4

REPORT INFORMATION
  Report Type: Spontaneous
  Country: US (occurrence: US)
  Receive Date: 20161223
  Receipt Date: 20161223
  Transmission Date: 20170207
  Serious: No
  Sender: FDA-Public Use
  Company Number: None

PATIENT
  Age: 28 Year
  Sex: Male

DRUGS (2)
  1. HUMIRA [Suspect]
     Active Substance: ADALIMUMAB
     Indication: CROHN^S DISEASE
     Dosage: INJECT 0.8 ML (40MG) EVERY 14 DAYS
     Route: 058
     Dates: start: 20140905
  2. HUMIRA [Suspect]
     Active Substance: ADALIMUMAB
     Indication: IMMUNODEFICIENCY COMMON VARIABLE
     Dosage: INJECT 0.8 ML (40MG) EVERY 14 DAYS
     Route: 058
     Dates: start: 20140905

REACTIONS (3)
  - Oropharyngeal pain [None]
  - Nasopharyngitis [None]
  - Aphonia [None]

NARRATIVE: CASE EVENT DATE: 20151213
